FAERS Safety Report 5194463-4 (Version None)
Quarter: 2006Q4

REPORT INFORMATION
  Report Type: 
  Country: None (occurrence: None)
  Receive Date: 20061222
  Receipt Date: 20061214
  Transmission Date: 20070319
  Serious: Yes (Other)
  Sender: FDA-Public Use
  Company Number: 233948

PATIENT
  Sex: 0

DRUGS (2)
  1. AVASTIN [Suspect]
     Indication: GLIOBLASTOMA MULTIFORME
  2. OXALIPLATIN [Suspect]
     Indication: GLIOBLASTOMA MULTIFORME

REACTIONS (3)
  - BLINDNESS [None]
  - DEMYELINATION [None]
  - RADIATION INJURY [None]
